FAERS Safety Report 20826375 (Version 13)
Quarter: 2022Q4

REPORT INFORMATION
  Report Type: Spontaneous
  Country: US (occurrence: US)
  Receive Date: 20220513
  Receipt Date: 20221227
  Transmission Date: 20230113
  Serious: No
  Sender: FDA-Public Use
  Company Number: US-BIOGEN-2022BI01120336

PATIENT
  Age: 47 Year
  Sex: Female

DRUGS (1)
  1. TYSABRI [Suspect]
     Active Substance: NATALIZUMAB
     Indication: Multiple sclerosis
     Dosage: INFUSED OVER 1 HOUR
     Route: 050
     Dates: start: 20110921, end: 202204

REACTIONS (16)
  - Product dose omission in error [Unknown]
  - Inappropriate schedule of product administration [Unknown]
  - Asthenia [Not Recovered/Not Resolved]
  - Malaise [Not Recovered/Not Resolved]
  - Multiple sclerosis [Unknown]
  - General physical health deterioration [Unknown]
  - Hypersomnia [Unknown]
  - Illness [Unknown]
  - Immunodeficiency [Unknown]
  - Frustration tolerance decreased [Unknown]
  - Hepatic lesion [Unknown]
  - COVID-19 [Unknown]
  - Stress [Unknown]
  - Cognitive disorder [Unknown]
  - Influenza [Not Recovered/Not Resolved]
  - Herpes zoster [Unknown]

NARRATIVE: CASE EVENT DATE: 20220501
